FAERS Safety Report 6500630-7 (Version None)
Quarter: 2009Q4

REPORT INFORMATION
  Report Type: 
  Country: None (occurrence: None)
  Receive Date: 20091216
  Receipt Date: 20081209
  Transmission Date: 20100525
  Serious: No
  Sender: FDA-Public Use
  Company Number: A0759931A

PATIENT
  Age: 55 Year
  Sex: Female

DRUGS (1)
  1. COMMIT [Suspect]
     Dates: start: 20081206, end: 20081207

REACTIONS (4)
  - EXPIRED DRUG ADMINISTERED [None]
  - NAUSEA [None]
  - SALIVARY HYPERSECRETION [None]
  - VOMITING [None]
